FAERS Safety Report 20081865 (Version 1)
Quarter: 2021Q4

REPORT INFORMATION
  Report Type: Spontaneous
  Country: DE (occurrence: DE)
  Receive Date: 20211117
  Receipt Date: 20211117
  Transmission Date: 20220303
  Serious: Yes (Hospitalization, Other)
  Sender: FDA-Public Use
  Company Number: DE-ADRED-06759-01

PATIENT
  Age: 75 Year
  Sex: Female
  Weight: 65 kg

DRUGS (8)
  1. APIXABAN [Suspect]
     Active Substance: APIXABAN
     Indication: Product used for unknown indication
     Dosage: 5 MILLIGRAM, BID (5 MG, 1-0-1-0, TABLETTEN)
     Route: 048
  2. PHENPROCOUMON [Suspect]
     Active Substance: PHENPROCOUMON
     Indication: Product used for unknown indication
     Dosage: 3 MILLIGRAM (NACH SCHEMA, TABLETTEN)
     Route: 048
  3. ALLOPURINOL [Concomitant]
     Active Substance: ALLOPURINOL
     Dosage: 300 MILLIGRAM, QD (1-0-0-0)
     Route: 048
  4. CANDESARTAN [Concomitant]
     Active Substance: CANDESARTAN
     Dosage: 16 MILLIGRAM (1-0-1-0)
     Route: 048
  5. LEVOTHYROXINE SODIUM [Concomitant]
     Active Substance: LEVOTHYROXINE SODIUM
     Dosage: 150 MICROGRAM (1-0-0-0)
     Route: 048
  6. METOPROLOL [Concomitant]
     Active Substance: METOPROLOL
     Dosage: 95 MILLIGRAM (1-0-0.5-0)
     Route: 048
  7. SIMVASTATIN [Concomitant]
     Active Substance: SIMVASTATIN
     Dosage: 40 MILLIGRAM (0-0-1-0)
     Route: 048
  8. METAMIZOL                          /06276701/ [Concomitant]
     Dosage: 500 MILLIGRAM, TID(500 MG, 1-1-1-0, TABLETTEN )
     Route: 048

REACTIONS (7)
  - Tachycardia [Unknown]
  - Dyspnoea [Unknown]
  - Atrial fibrillation [Unknown]
  - Angina pectoris [Unknown]
  - Product monitoring error [Unknown]
  - Pain [Unknown]
  - Dizziness [Unknown]
